FAERS Safety Report 18944534 (Version 2)
Quarter: 2021Q1

REPORT INFORMATION
  Report Type: Report from Study
  Country: US (occurrence: US)
  Receive Date: 20210226
  Receipt Date: 20210326
  Transmission Date: 20210420
  Serious: Yes (Hospitalization)
  Sender: FDA-Public Use
  Company Number: US-EMD SERONO-9220869

PATIENT
  Age: 53 Year
  Sex: Male

DRUGS (1)
  1. REBIF [Suspect]
     Active Substance: INTERFERON BETA-1A
     Indication: PRODUCT USED FOR UNKNOWN INDICATION
     Route: 058
     Dates: start: 20030415

REACTIONS (7)
  - Injection site erythema [Unknown]
  - Multiple sclerosis [Unknown]
  - Flushing [Unknown]
  - Urethral injury [Unknown]
  - Injection site mass [Unknown]
  - Urinary tract infection [Unknown]
  - Dysarthria [Unknown]
